FAERS Safety Report 9636257 (Version 2)
Quarter: 2013Q4

REPORT INFORMATION
  Report Type: Report from Study
  Country: US (occurrence: US)
  Receive Date: 20131021
  Receipt Date: 20131021
  Transmission Date: 20140711
  Serious: Yes (Hospitalization, Other)
  Sender: FDA-Public Use
  Company Number: PHHO2010US10585

PATIENT
  Age: 66 Year
  Sex: Male

DRUGS (1)
  1. SOM230 [Suspect]
     Indication: PANCREATICODUODENECTOMY
     Dosage: 900 UG, BID
     Route: 058
     Dates: start: 20100707

REACTIONS (1)
  - Hyperglycaemia [Recovered/Resolved]
